FAERS Safety Report 12973690 (Version 1)
Quarter: 2016Q4

REPORT INFORMATION
  Report Type: Spontaneous
  Country: BG (occurrence: BG)
  Receive Date: 20161124
  Receipt Date: 20161124
  Transmission Date: 20170207
  Serious: Yes (Other)
  Sender: FDA-Public Use
  Company Number: BG-ASTRAZENECA-2016SF24168

PATIENT
  Age: 62 Year
  Sex: Male

DRUGS (4)
  1. ATORVASTATIN [Suspect]
     Active Substance: ATORVASTATIN
     Route: 065
  2. BRILIQUE [Suspect]
     Active Substance: TICAGRELOR
     Route: 048
  3. ASPIRIN. [Suspect]
     Active Substance: ASPIRIN
     Route: 065
  4. BETALOC ZOK [Suspect]
     Active Substance: METOPROLOL SUCCINATE
     Route: 048

REACTIONS (1)
  - Epistaxis [Recovering/Resolving]
